FAERS Safety Report 6003196-3 (Version None)
Quarter: 2008Q4

REPORT INFORMATION
  Report Type: 
  Country: None (occurrence: None)
  Receive Date: 20081216
  Receipt Date: 20081209
  Transmission Date: 20090506
  Serious: Yes (Other)
  Sender: FDA-Public Use
  Company Number: FR-ROXANE LABORATORIES, INC.-2008-RO-00383RO

PATIENT
  Age: 48 Year
  Sex: Male

DRUGS (4)
  1. AZATHIOPRINE [Suspect]
     Indication: CROHN'S DISEASE
  2. RIBAVIRIN PLUS PEGINTERFERON ALPHA [Suspect]
     Indication: HEPATITIS C
  3. NEUPOGEN [Concomitant]
     Indication: NEUTROPHIL COUNT DECREASED
  4. RECOMBINANT HUMAN ERYTHROPOIETIN [Concomitant]
     Indication: ANAEMIA

REACTIONS (2)
  - BONE MARROW FAILURE [None]
  - DRUG INTERACTION [None]
